FAERS Safety Report 5856891-0 (Version None)
Quarter: 2008Q3

REPORT INFORMATION
  Report Type: 
  Country: None (occurrence: None)
  Receive Date: 20080822
  Receipt Date: 20080822
  Transmission Date: 20090109
  Serious: Yes (Other)
  Sender: FDA-Public Use
  Company Number: None

PATIENT

DRUGS (2)
  1. LIDOCAINE 2% [Suspect]
     Indication: CATARACT OPERATION
     Dates: start: 20080821, end: 20080821
  2. VITRASE [Suspect]
     Indication: CATARACT OPERATION

REACTIONS (1)
  - DRUG INEFFECTIVE [None]
